FAERS Safety Report 15974966 (Version 1)
Quarter: 2019Q1

REPORT INFORMATION
  Report Type: Spontaneous
  Country: FR (occurrence: FR)
  Receive Date: 20190218
  Receipt Date: 20190218
  Transmission Date: 20190418
  Serious: Yes (Other)
  Sender: FDA-Public Use
  Company Number: FR-BAXTER-2019BAX003289

PATIENT
  Age: 3 Year
  Sex: Female
  Weight: 11.9 kg

DRUGS (1)
  1. HOLOXAN 1000 MG, POUDRE POUR SOLUTION INJECTABLE [Suspect]
     Active Substance: IFOSFAMIDE
     Indication: NEPHROBLASTOMA
     Route: 042
     Dates: start: 20180507, end: 20180507

REACTIONS (4)
  - Abnormal behaviour [Recovered/Resolved]
  - Cerebellar ataxia [Recovered/Resolved]
  - Encephalopathy [Recovered/Resolved]
  - Hypotonia [Recovered/Resolved]

NARRATIVE: CASE EVENT DATE: 20180508
